FAERS Safety Report 7539582-X (Version None)
Quarter: 2011Q2

REPORT INFORMATION
  Report Type: 
  Country: None (occurrence: None)
  Receive Date: 20110610
  Receipt Date: 20110321
  Transmission Date: 20111010
  Serious: Yes (Hospitalization, Other)
  Sender: FDA-Public Use
  Company Number: US-BAYER-201040717NA

PATIENT
  Age: 31 Year
  Sex: Female
  Weight: 90.703 kg

DRUGS (11)
  1. XANAX [Concomitant]
     Indication: ANXIETY
     Dosage: UNK
     Dates: start: 20060101, end: 20070101
  2. YAZ [Suspect]
     Dosage: UNK
     Route: 048
     Dates: start: 20091001
  3. KLONOPIN [Concomitant]
     Indication: ANXIETY
     Dosage: UNK
     Dates: start: 20060101, end: 20070101
  4. ANTIBIOTICS [Concomitant]
     Dosage: UNK UNK, PRN
  5. IBUPROFEN [Concomitant]
     Dosage: UNK UNK, PRN
  6. SEASONALE [Concomitant]
     Dosage: UNK
     Dates: start: 20070126
  7. AYGESTIN [Concomitant]
  8. YAZ [Suspect]
     Indication: PREMENSTRUAL SYNDROME
     Dosage: UNK
     Route: 048
     Dates: start: 20070410, end: 20080701
  9. CONTRACEPTIVES NOS [Concomitant]
     Dosage: UNK
     Dates: start: 20000101, end: 20090101
  10. TYLENOL 1 [Concomitant]
     Dosage: UNK UNK, PRN
  11. YAZ [Suspect]
     Indication: CONTRACEPTION
     Dosage: UNK
     Route: 048
     Dates: start: 19960101, end: 19990101

REACTIONS (6)
  - COAGULOPATHY [None]
  - DYSFUNCTIONAL UTERINE BLEEDING [None]
  - INFERTILITY [None]
  - ANXIETY [None]
  - UTERINE HAEMORRHAGE [None]
  - ENDOMETRIAL ABLATION [None]
